FAERS Safety Report 13840309 (Version 1)
Quarter: 2017Q3

REPORT INFORMATION
  Report Type: Spontaneous
  Country: US (occurrence: US)
  Receive Date: 20170807
  Receipt Date: 20170807
  Transmission Date: 20171127
  Serious: No
  Sender: FDA-Public Use
  Company Number: US-AEGERION PHARMACEUTICAL, INC-AEGR003058

PATIENT
  Age: 68 Year
  Sex: Female
  Weight: 114.74 kg

DRUGS (1)
  1. MYALEPT [Suspect]
     Active Substance: METRELEPTIN
     Indication: CONGENITAL GENERALISED LIPODYSTROPHY
     Dosage: 5 MG, QD
     Route: 058

REACTIONS (6)
  - Wheezing [Recovering/Resolving]
  - Urinary tract infection [Unknown]
  - Cardiac disorder [Unknown]
  - Weight fluctuation [Unknown]
  - Oropharyngeal pain [Recovering/Resolving]
  - Asthma [Recovering/Resolving]

NARRATIVE: CASE EVENT DATE: 201702
